FAERS Safety Report 16143382 (Version 1)
Quarter: 2019Q2

REPORT INFORMATION
  Report Type: Spontaneous
  Country: CN (occurrence: CN)
  Receive Date: 20190401
  Receipt Date: 20190401
  Transmission Date: 20190711
  Serious: Yes (Hospitalization)
  Sender: FDA-Public Use
  Company Number: CN-PFIZER INC-2019108649

PATIENT
  Age: 92 Year
  Sex: Female

DRUGS (4)
  1. ZYVOX [Suspect]
     Active Substance: LINEZOLID
     Indication: SOFT TISSUE INFECTION
     Dosage: UNK
     Dates: start: 201903, end: 201903
  2. ZYVOX [Suspect]
     Active Substance: LINEZOLID
     Indication: ERYTHEMA
  3. ZYVOX [Suspect]
     Active Substance: LINEZOLID
     Indication: PERIPHERAL SWELLING
  4. ZYVOX [Suspect]
     Active Substance: LINEZOLID
     Indication: SKIN INFECTION

REACTIONS (3)
  - Mouth ulceration [Recovering/Resolving]
  - Tongue erythema [Recovering/Resolving]
  - Tongue disorder [Recovering/Resolving]

NARRATIVE: CASE EVENT DATE: 201903
